FAERS Safety Report 7450336-5 (Version None)
Quarter: 2011Q2

REPORT INFORMATION
  Report Type: 
  Country: None (occurrence: None)
  Receive Date: 20110422
  Receipt Date: 20110411
  Transmission Date: 20111010
  Serious: Yes (Hospitalization)
  Sender: FDA-Public Use
  Company Number: 2010-2709

PATIENT
  Age: 70 Year
  Sex: Male
  Weight: 95 kg

DRUGS (4)
  1. COLCHICINE [Concomitant]
  2. LANREOTIDE OR PLACEBO (LANREOTIDE) (BLINDED STUDY DRUG) [Suspect]
     Indication: NEUROENDOCRINE TUMOUR
     Dosage: (120 MG,1 IN 1 M),SUBCUTANEOUS
     Route: 058
     Dates: start: 20100302
  3. OMEPRAZOLE [Concomitant]
  4. MAGNESIUM (MAGNESIUM) [Concomitant]

REACTIONS (1)
  - BILE DUCT STENOSIS [None]
